APPROVED DRUG PRODUCT: WARFARIN SODIUM
Active Ingredient: WARFARIN SODIUM
Strength: 2MG
Dosage Form/Route: TABLET;ORAL
Application: A090935 | Product #002 | TE Code: AB
Applicant: INVAGEN PHARMACEUTICALS INC
Approved: May 25, 2011 | RLD: No | RS: No | Type: RX